FAERS Safety Report 22254360 (Version 1)
Quarter: 2023Q2

REPORT INFORMATION
  Report Type: Spontaneous
  Country: US (occurrence: US)
  Receive Date: 20230426
  Receipt Date: 20230426
  Transmission Date: 20230721
  Serious: No
  Sender: FDA-Public Use
  Company Number: US-drreddys-SPO/USA/23/0163675

PATIENT
  Age: 24 Year

DRUGS (1)
  1. ZENATANE [Suspect]
     Active Substance: ISOTRETINOIN
     Indication: Product used for unknown indication
     Dosage: RMA ISSUE DATE: 06 OCTOBER 2022 02:59:12 PM, 10 DECEMBER 2022 01:23:22 PM, 13 DECEMBER 2022 03:30:15

REACTIONS (1)
  - Treatment noncompliance [Unknown]
